FAERS Safety Report 8896709 (Version 1)
Quarter: 2012Q4

REPORT INFORMATION
  Report Type: 
  Country: US (occurrence: US)
  Receive Date: 20121108
  Receipt Date: 20121108
  Transmission Date: 20130627
  Serious: No
  Sender: FDA-Public Use
  Company Number: US-AMGEN-USASP2012032726

PATIENT
  Age: 63 Year
  Sex: Male

DRUGS (11)
  1. ENBREL [Suspect]
     Indication: RHEUMATOID ARTHRITIS
     Dosage: 50 mg, qwk
     Dates: start: 201203
  2. ASPIRIN [Concomitant]
     Dosage: 1 mg, UNK
  3. AMLODIPINE [Concomitant]
     Dosage: UNK
  4. RAMIPRIL [Concomitant]
     Dosage: UNK
  5. METHOTREXATE [Concomitant]
     Dosage: UNK
  6. METFORMIN [Concomitant]
     Dosage: UNK
  7. FOLIC ACID [Concomitant]
     Dosage: UNK
  8. GLIPIZIDE [Concomitant]
     Dosage: UNK
  9. ACETAMINOPHEN [Concomitant]
     Dosage: UNK
  10. METOPROLOL [Concomitant]
     Dosage: UNK
  11. VITAMIN D /00107901/ [Concomitant]
     Dosage: UNK

REACTIONS (3)
  - Dyspnoea [Unknown]
  - Cough [Unknown]
  - Sinusitis [Unknown]
